FAERS Safety Report 16593892 (Version 1)
Quarter: 2019Q3

REPORT INFORMATION
  Report Type: Other
  Country: US (occurrence: US)
  Receive Date: 20190718
  Receipt Date: 20190718
  Transmission Date: 20191004
  Serious: No
  Sender: FDA-Public Use
  Company Number: US-SWEDISH ORPHAN BIOVITRUM-2018US1511

PATIENT
  Sex: Female

DRUGS (8)
  1. LOSARTAN W/ POTASSIUM [Concomitant]
  2. CYMBALTA [Concomitant]
     Active Substance: DULOXETINE HYDROCHLORIDE
  3. FOLIC ACID. [Concomitant]
     Active Substance: FOLIC ACID
  4. LEVOTHYROXINE. [Concomitant]
     Active Substance: LEVOTHYROXINE
  5. GABAPENTIN. [Concomitant]
     Active Substance: GABAPENTIN
  6. KINERET [Suspect]
     Active Substance: ANAKINRA
     Route: 058
     Dates: start: 20181114
  7. METHOTREXATE. [Concomitant]
     Active Substance: METHOTREXATE
  8. PREDNISONE. [Concomitant]
     Active Substance: PREDNISONE

REACTIONS (3)
  - Swelling [Unknown]
  - Rash [Unknown]
  - Urticaria [Unknown]
